FAERS Safety Report 6267292-8 (Version None)
Quarter: 2009Q3

REPORT INFORMATION
  Report Type: 
  Country: None (occurrence: None)
  Receive Date: 20090714
  Receipt Date: 20090706
  Transmission Date: 20100115
  Serious: Yes (Other)
  Sender: FDA-Public Use
  Company Number: AU-PFIZER INC-2009236066

PATIENT
  Age: 78 Year

DRUGS (1)
  1. LIPITOR [Suspect]
     Dosage: 20 MG, UNK
     Dates: start: 20050101

REACTIONS (9)
  - ARTHRALGIA [None]
  - ASTHENIA [None]
  - DRY SKIN [None]
  - FATIGUE [None]
  - LUNG NEOPLASM MALIGNANT [None]
  - MUSCLE SPASMS [None]
  - MYALGIA [None]
  - PARAESTHESIA [None]
  - POLYMYALGIA RHEUMATICA [None]
